FAERS Safety Report 8286846-0 (Version None)
Quarter: 2012Q2

REPORT INFORMATION
  Report Type: 
  Country: None (occurrence: None)
  Receive Date: 20120416
  Receipt Date: 20120410
  Transmission Date: 20120825
  Serious: Yes (Death, Life-Threatening, Hospitalization)
  Sender: FDA-Public Use
  Company Number: DE-SANOFI-AVENTIS-2011SA054350

PATIENT
  Age: 79 Year
  Sex: Male
  Weight: 91 kg

DRUGS (14)
  1. VITAMIN B-12 [Concomitant]
     Indication: VITAMIN B12 DEFICIENCY
     Dosage: DAILY DOSE: 1 DF DOSAGE FORM EVERY 4 WEEK
     Route: 058
  2. ACETYLSALICYLIC ACID SRT [Concomitant]
     Indication: THROMBOSIS PROPHYLAXIS
     Route: 048
     Dates: end: 20110801
  3. METOPROLOL TARTRATE AND HYDROCHLOROTHIAZIDE [Concomitant]
     Indication: CORONARY ARTERY DISEASE
     Route: 048
     Dates: end: 20110801
  4. FOLIC ACID [Concomitant]
     Route: 065
  5. INSULIN HUMAN [Concomitant]
     Route: 058
     Dates: end: 20110801
  6. PANTOPRAZOLE [Concomitant]
     Route: 065
  7. CARBAMAZEPINE [Concomitant]
     Route: 065
  8. ANTIHYPERTENSIVES [Concomitant]
     Route: 048
     Dates: end: 20110801
  9. LEVOFLOXACIN [Concomitant]
     Indication: INFECTION
     Dates: start: 20110801, end: 20110801
  10. FERRLECIT [Suspect]
     Indication: ANAEMIA
     Route: 042
     Dates: start: 20110707, end: 20110818
  11. EZETIMIBE [Concomitant]
     Route: 065
  12. METOPROLOL TARTRATE AND HYDROCHLOROTHIAZIDE [Concomitant]
     Indication: HYPERTENSION
     Route: 048
     Dates: end: 20110801
  13. METFORMIN HCL [Concomitant]
     Route: 048
     Dates: end: 20110801
  14. RED BLOOD CELLS, CONCENTRATED [Concomitant]
     Route: 065
     Dates: start: 20110801, end: 20110801

REACTIONS (9)
  - BLOOD PRESSURE INCREASED [None]
  - TACHYCARDIA [None]
  - HEADACHE [None]
  - MUSCLE SPASMS [None]
  - CIRCULATORY COLLAPSE [None]
  - COMA [None]
  - ANXIETY [None]
  - ALTERED STATE OF CONSCIOUSNESS [None]
  - CEREBRAL INFARCTION [None]
